FAERS Safety Report 21437054 (Version 3)
Quarter: 2022Q4

REPORT INFORMATION
  Report Type: Report from Study
  Country: US (occurrence: US)
  Receive Date: 20221010
  Receipt Date: 20221128
  Transmission Date: 20230112
  Serious: Yes (Hospitalization, Other)
  Sender: FDA-Public Use
  Company Number: US-KYOWAKIRIN-2022BKK015670

PATIENT

DRUGS (2)
  1. CRYSVITA [Suspect]
     Active Substance: BUROSUMAB-TWZA
     Indication: Hereditary hypophosphataemic rickets
     Dosage: 60 MG, 1X/4 WEEKS
     Route: 058
     Dates: start: 20200110
  2. CRYSVITA [Suspect]
     Active Substance: BUROSUMAB-TWZA
     Dosage: 60 MG, 1X/4 WEEKS
     Route: 058

REACTIONS (11)
  - Cholelithiasis [Unknown]
  - Fall [Unknown]
  - Upper limb fracture [Unknown]
  - Post procedural bile leak [Unknown]
  - Hypertension [Unknown]
  - Blood glucose increased [Unknown]
  - Procedural pain [Unknown]
  - Procedural complication [Unknown]
  - Pain [Unknown]
  - Gallbladder operation [Unknown]
  - Gastric operation [Unknown]
